FAERS Safety Report 22353176 (Version 6)
Quarter: 2023Q4

REPORT INFORMATION
  Report Type: Report from Study
  Country: CA (occurrence: CA)
  Receive Date: 20230523
  Receipt Date: 20231115
  Transmission Date: 20240110
  Serious: Yes (Hospitalization, Other)
  Sender: FDA-Public Use
  Company Number: CA-JNJFOC-20221265509

PATIENT
  Age: 47 Year
  Sex: Female
  Weight: 123.03 kg

DRUGS (2)
  1. REMICADE [Suspect]
     Active Substance: INFLIXIMAB
     Indication: Crohn^s disease
     Dosage: ON 24-MAR-2023, THE PATIENT RECEIVED 43RD 1100MG INFLIXIMAB INFUSION AND PARTIAL HARVEY-BRADSHAW WAS
     Route: 041
     Dates: start: 20160831
  2. AZATHIOPRINE [Concomitant]
     Active Substance: AZATHIOPRINE
     Indication: Product used for unknown indication
     Route: 048
     Dates: end: 20230901

REACTIONS (7)
  - Overweight [Unknown]
  - Thrombosis [Recovered/Resolved]
  - Crohn^s disease [Recovering/Resolving]
  - COVID-19 [Recovered/Resolved]
  - Retching [Unknown]
  - Weight decreased [Unknown]
  - Inappropriate schedule of product administration [Unknown]

NARRATIVE: CASE EVENT DATE: 20230310
